FAERS Safety Report 24614637 (Version 2)
Quarter: 2024Q4

REPORT INFORMATION
  Report Type: Spontaneous
  Country: US (occurrence: US)
  Receive Date: 20241113
  Receipt Date: 20241227
  Transmission Date: 20250115
  Serious: No
  Sender: PFIZER
  Company Number: US-PFIZER INC-PV202400127500

PATIENT
  Age: 76 Year
  Sex: Female

DRUGS (1)
  1. PALBOCICLIB [Suspect]
     Active Substance: PALBOCICLIB
     Dosage: 75 MG, CYCLIC, [ONCE DAILY FOR 1- 14 DAY FOLLOWED BY 7 DAYS OFF EVERY 21 DAYS]
     Route: 048

REACTIONS (2)
  - Dizziness [Unknown]
  - Off label use [Unknown]
